FAERS Safety Report 18353173 (Version 1)
Quarter: 2020Q4

REPORT INFORMATION
  Report Type: Spontaneous
  Country: FR (occurrence: FR)
  Receive Date: 20201007
  Receipt Date: 20201007
  Transmission Date: 20210114
  Serious: Yes (Hospitalization)
  Sender: FDA-Public Use
  Company Number: FR-TEVA-2020-FR-1835432

PATIENT
  Age: 63 Year
  Sex: Female

DRUGS (1)
  1. DOXYCYCLINE BASE [Suspect]
     Active Substance: DOXYCYCLINE
     Indication: LYME DISEASE
     Dosage: 200 MG
     Route: 048
     Dates: start: 20200604, end: 20200623

REACTIONS (2)
  - Pancreatic failure [Not Recovered/Not Resolved]
  - Pancreatitis acute [Recovered/Resolved with Sequelae]

NARRATIVE: CASE EVENT DATE: 20200622
